FAERS Safety Report 9463093 (Version 1)
Quarter: 2013Q3

REPORT INFORMATION
  Report Type: Spontaneous
  Country: US (occurrence: US)
  Receive Date: 20130816
  Receipt Date: 20130816
  Transmission Date: 20140515
  Serious: Yes (Death, Other)
  Sender: FDA-Public Use
  Company Number: US-NAPPMUNDI-USA-2013-0105275

PATIENT
  Age: 30 Year
  Sex: Male

DRUGS (4)
  1. OXYCODONE HYDROCHLORIDE (SIMILAR TO NDA 22-272) [Suspect]
     Indication: BACK PAIN
  2. ALCOHOL [Suspect]
     Indication: DRUG ABUSE
  3. TESTOSTERONE [Concomitant]
     Indication: PRODUCT USED FOR UNKNOWN INDICATION
  4. THYROID THERAPY [Concomitant]
     Indication: PRODUCT USED FOR UNKNOWN INDICATION

REACTIONS (8)
  - Overdose [Fatal]
  - Substance abuse [Unknown]
  - Post concussion syndrome [Fatal]
  - Pneumonia aspiration [Fatal]
  - Anxiety [Unknown]
  - Disorientation [Unknown]
  - Paranoia [Unknown]
  - Decreased activity [Unknown]
